FAERS Safety Report 20233176 (Version 2)
Quarter: 2022Q1

REPORT INFORMATION
  Report Type: Spontaneous
  Country: US (occurrence: US)
  Receive Date: 20211227
  Receipt Date: 20220117
  Transmission Date: 20220423
  Serious: Yes (Other)
  Sender: FDA-Public Use
  Company Number: US-009507513-2112USA003850

PATIENT
  Age: 27 Year
  Sex: Female
  Weight: 56.1 kg

DRUGS (18)
  1. KEYTRUDA [Suspect]
     Active Substance: PEMBROLIZUMAB
     Indication: Hodgkin^s disease
     Dosage: 200 MG EVERY 6 WEEKS
     Route: 042
     Dates: start: 20180221
  2. NEURONTIN [Concomitant]
     Active Substance: GABAPENTIN
     Dosage: 1 CAPSULE (400 MG), TID
     Route: 048
  3. ASCORBIC ACID [Concomitant]
     Active Substance: ASCORBIC ACID
     Dosage: 1000 MILLIGRAM, 1 TIME PER DAY
     Route: 048
  4. VITAMIN D3 [Concomitant]
     Active Substance: CHOLECALCIFEROL
     Dosage: 2000 INTERNATIONAL UNIT, 1 TIME PER DAY
     Route: 048
  5. ZINC [Concomitant]
     Active Substance: ZINC
     Dosage: 30 MILLIGRAM, 1 TIME PER DAY
     Route: 048
  6. D-MANNOSE [Concomitant]
     Dosage: 2 TABLETS, 1 TIME PER DAY
     Route: 048
  7. DITROPAN XL [Concomitant]
     Active Substance: OXYBUTYNIN CHLORIDE
     Dosage: 1 TABLET (5 MG), 1 TIME PER DAY
     Route: 048
  8. HIPREX [METHENAMINE HIPPURATE] [Concomitant]
     Dosage: 1 TABLET (1 G), 1 TIME PER DAY
     Route: 048
  9. PREMARIN [Concomitant]
     Active Substance: ESTROGENS, CONJUGATED
     Dosage: APPLY 1 INCH, 3 TIMES PER WEEK
     Route: 067
  10. LIDOCAINE HYDROCHLORIDE [Concomitant]
     Active Substance: LIDOCAINE HYDROCHLORIDE
     Indication: Stomatitis
     Dosage: 15 MILLILITER, EVERY 6 HOURS AS NEEDED
     Route: 048
  11. VITAMIN A [Concomitant]
     Active Substance: VITAMIN A
     Dosage: 10000 UNITS, TWO TIMES A DAY
     Route: 048
  12. POTASSIUM [Concomitant]
     Active Substance: POTASSIUM
     Dosage: 550 MILLIGRAM, TWO TIMES A DAY
     Route: 048
  13. ZOFRAN [Concomitant]
     Active Substance: ONDANSETRON HYDROCHLORIDE
     Indication: Nausea
     Dosage: 1 TABLET (8MG) EVERY 8 HOURS AS NEEDED
     Route: 048
  14. ZOFRAN [Concomitant]
     Active Substance: ONDANSETRON HYDROCHLORIDE
     Indication: Vomiting
  15. PHENERGAN [Concomitant]
     Active Substance: PROMETHAZINE HYDROCHLORIDE
     Indication: Nausea
     Dosage: APPLY 0.2 ML (25 MG) EVERY 6 HOURS AS NEEDED
     Route: 061
  16. LEVAQUIN [Concomitant]
     Active Substance: LEVOFLOXACIN
     Dosage: 1 TABLET (500 MG), 1 TIME PER DAY
     Route: 048
  17. ZITHROMAX [Concomitant]
     Active Substance: AZITHROMYCIN DIHYDRATE
     Dosage: 2 TABLET, TODAY
     Route: 048
  18. ZITHROMAX [Concomitant]
     Active Substance: AZITHROMYCIN DIHYDRATE
     Dosage: 1 TABLET, EVERY DAY
     Route: 048

REACTIONS (29)
  - Central venous catheterisation [Unknown]
  - Ileostomy [Unknown]
  - Proctocolectomy [Unknown]
  - Cauda equina syndrome [Unknown]
  - Crohn^s disease [Unknown]
  - Colitis ulcerative [Unknown]
  - Neurogenic bladder [Unknown]
  - Immunodeficiency [Unknown]
  - Hodgkin^s disease nodular sclerosis [Recovered/Resolved]
  - Hodgkin^s disease stage III [Recovered/Resolved]
  - Central venous catheterisation [Unknown]
  - Bone marrow transplant [Unknown]
  - Enterocolitis [Unknown]
  - Colonoscopy [Unknown]
  - Polyp [Unknown]
  - Central venous catheter removal [Unknown]
  - Tachycardia [Unknown]
  - Neurogenic bowel [Unknown]
  - Oesophagitis [Unknown]
  - Urinary tract infection [Unknown]
  - Mediastinal mass [Unknown]
  - Iron deficiency anaemia [Unknown]
  - Pain in extremity [Unknown]
  - Anaemia [Unknown]
  - Nausea [Unknown]
  - Vomiting [Unknown]
  - Incorrect product administration duration [Unknown]
  - Incorrect dose administered [Unknown]
  - Intentional product use issue [Unknown]

NARRATIVE: CASE EVENT DATE: 20180914
